FAERS Safety Report 20535250 (Version 2)
Quarter: 2022Q1

REPORT INFORMATION
  Report Type: Spontaneous
  Country: US (occurrence: US)
  Receive Date: 20220302
  Receipt Date: 20220324
  Transmission Date: 20220423
  Serious: Yes (Hospitalization, Other)
  Sender: FDA-Public Use
  Company Number: US-009507513-2202USA007478

PATIENT
  Age: 28 Year
  Sex: Female

DRUGS (3)
  1. KEYTRUDA [Suspect]
     Active Substance: PEMBROLIZUMAB
     Dosage: UNK
  2. COVID-19 VACCINE [Concomitant]
     Dosage: UNK
     Dates: start: 20210730
  3. COVID-19 VACCINE [Concomitant]
     Dosage: UNK
     Dates: start: 20210821

REACTIONS (12)
  - Clostridium difficile colitis [Unknown]
  - Type 2 diabetes mellitus [Not Recovered/Not Resolved]
  - Device related infection [Unknown]
  - Abscess bacterial [Recovering/Resolving]
  - Meningitis [Unknown]
  - Back pain [Unknown]
  - Asymptomatic COVID-19 [Unknown]
  - Microcytic anaemia [Unknown]
  - Obesity [Not Recovered/Not Resolved]
  - Heart rate abnormal [Unknown]
  - Drug intolerance [Unknown]
  - Diarrhoea [Recovered/Resolved]

NARRATIVE: CASE EVENT DATE: 20210101
